FAERS Safety Report 21221471 (Version 1)
Quarter: 2022Q3

REPORT INFORMATION
  Report Type: Spontaneous
  Country: US (occurrence: None)
  Receive Date: 20220816
  Receipt Date: 20220816
  Transmission Date: 20221027
  Serious: Yes (Disabling, Other)
  Sender: FDA-Public Use
  Company Number: None

PATIENT
  Age: 76 Year
  Sex: Male
  Weight: 83.7 kg

DRUGS (12)
  1. WIXELA INHUB [Suspect]
     Active Substance: FLUTICASONE PROPIONATE\SALMETEROL XINAFOATE
     Indication: Chronic obstructive pulmonary disease
     Dosage: OTHER STRENGTH : MCG;?OTHER QUANTITY : 1 PUFF(S);?FREQUENCY : TWICE A DAY;?
     Route: 048
  2. levethyroxine [Concomitant]
  3. HYDROCHLOROTHIAZIDE [Concomitant]
     Active Substance: HYDROCHLOROTHIAZIDE
  4. KETOCONAZOLE [Concomitant]
     Active Substance: KETOCONAZOLE
  5. IBUPROFEN [Concomitant]
     Active Substance: IBUPROFEN
  6. ACYCLOVIR [Concomitant]
     Active Substance: ACYCLOVIR
  7. ALBUTEROL [Concomitant]
     Active Substance: ALBUTEROL
  8. Vit: B-6 [Concomitant]
  9. VITAMIN B12 [Concomitant]
     Active Substance: CYANOCOBALAMIN
  10. CHOLECALCIFEROL [Concomitant]
     Active Substance: CHOLECALCIFEROL
  11. C [Concomitant]
  12. NIACINAMIDE [Concomitant]
     Active Substance: NIACINAMIDE

REACTIONS (8)
  - Dyspnoea [None]
  - Productive cough [None]
  - Body temperature increased [None]
  - Fatigue [None]
  - Asthenia [None]
  - Dysphonia [None]
  - Depressed mood [None]
  - Oxygen saturation decreased [None]
